FAERS Safety Report 22049616 (Version 2)
Quarter: 2023Q1

REPORT INFORMATION
  Report Type: Spontaneous
  Country: JP (occurrence: JP)
  Receive Date: 20230301
  Receipt Date: 20230307
  Transmission Date: 20230417
  Serious: Yes (Hospitalization)
  Sender: FDA-Public Use
  Company Number: JP-CHUGAI-2023005885

PATIENT
  Age: 78 Year
  Sex: Female
  Weight: 34 kg

DRUGS (1)
  1. ACTEMRA [Suspect]
     Active Substance: TOCILIZUMAB
     Indication: Rheumatoid arthritis
     Route: 041
     Dates: start: 2022

REACTIONS (2)
  - Injury [Recovered/Resolved]
  - Off label use [Unknown]
